FAERS Safety Report 21693118 (Version 1)
Quarter: 2022Q4

REPORT INFORMATION
  Report Type: Spontaneous
  Country: KR (occurrence: KR)
  Receive Date: 20221207
  Receipt Date: 20221207
  Transmission Date: 20230113
  Serious: Yes (Death, Hospitalization, Other)
  Sender: FDA-Public Use
  Company Number: KR-009507513-2212KOR001989

PATIENT
  Age: 75 Year
  Sex: Female
  Weight: 47.3 kg

DRUGS (9)
  1. PEMBROLIZUMAB [Suspect]
     Active Substance: PEMBROLIZUMAB
     Indication: Endometrial cancer
     Dosage: 200 MILLIGRAM
     Route: 042
     Dates: start: 20220907, end: 20221124
  2. LENVATINIB MESYLATE [Suspect]
     Active Substance: LENVATINIB MESYLATE
     Indication: Endometrial cancer
     Dosage: 14 MILLIGRAM, QD
     Route: 048
     Dates: start: 20220907, end: 20221202
  3. FEROBA YOU SR [Concomitant]
     Indication: Anaemia
     Dosage: 1 TABLET, QD
     Dates: start: 20220907
  4. ENTELON [Concomitant]
     Indication: Pulmonary embolism
     Dosage: 2 TABLETS, QD
     Route: 048
     Dates: start: 20201214
  5. ELIQUIS [Concomitant]
     Active Substance: APIXABAN
     Indication: Pulmonary embolism
     Dosage: 1 TABLET, QD
     Route: 048
     Dates: start: 20201214
  6. ACETAMINOPHEN [Concomitant]
     Active Substance: ACETAMINOPHEN
     Indication: Pain
     Dosage: 3 CAPSULES, QD
     Route: 048
     Dates: start: 20220826
  7. CELEBREX [Concomitant]
     Active Substance: CELECOXIB
     Indication: Pain
     Dosage: 2 CAPSULES, QD
     Route: 048
  8. LYRICA [Concomitant]
     Active Substance: PREGABALIN
     Indication: Pain
     Dosage: 2 CAPSULES, QD
     Route: 048
     Dates: start: 20220826
  9. LAFUTIDINE [Concomitant]
     Active Substance: LAFUTIDINE
     Indication: Gastritis prophylaxis
     Dosage: 2 TABLETS, QD
     Route: 048
     Dates: start: 20220826

REACTIONS (2)
  - Multiple organ dysfunction syndrome [Fatal]
  - Discomfort [Recovering/Resolving]

NARRATIVE: CASE EVENT DATE: 20221128
